FAERS Safety Report 6648999-7 (Version None)
Quarter: 2010Q1

REPORT INFORMATION
  Report Type: 
  Country: None (occurrence: None)
  Receive Date: 20100324
  Receipt Date: 20100316
  Transmission Date: 20100710
  Serious: Yes (Hospitalization)
  Sender: FDA-Public Use
  Company Number: DE-ABBOTT-09P-062-0603069-00

PATIENT
  Sex: Male
  Weight: 76 kg

DRUGS (13)
  1. HUMIRA [Suspect]
     Indication: POLYARTHRITIS
     Route: 058
  2. HUMIRA [Suspect]
     Indication: RHEUMATOID ARTHRITIS
  3. PREDNISOLON [Concomitant]
     Indication: POLYARTHRITIS
     Dosage: 5 TO 7.5 MG PER DAY
  4. ATACAND16 PLUS [Concomitant]
     Indication: DRUG USE FOR UNKNOWN INDICATION
  5. METOPROLOL [Concomitant]
     Indication: DRUG USE FOR UNKNOWN INDICATION
  6. MOXONIDIN [Concomitant]
     Indication: DRUG USE FOR UNKNOWN INDICATION
  7. DECORTIN H [Concomitant]
     Indication: DRUG USE FOR UNKNOWN INDICATION
  8. ASPIRIN [Concomitant]
     Indication: DRUG USE FOR UNKNOWN INDICATION
  9. TAMSOLUSIN 0.4 [Concomitant]
     Indication: DRUG USE FOR UNKNOWN INDICATION
  10. VALORON 50/4 RET [Concomitant]
     Indication: DRUG USE FOR UNKNOWN INDICATION
  11. GABAPENTIN [Concomitant]
     Indication: DRUG USE FOR UNKNOWN INDICATION
  12. IDEOS [Concomitant]
     Indication: DRUG USE FOR UNKNOWN INDICATION
  13. PANTOPRAZOLE [Concomitant]
     Indication: DRUG USE FOR UNKNOWN INDICATION

REACTIONS (2)
  - PULMONARY EMBOLISM [None]
  - SKIN LESION [None]
